FAERS Safety Report 8564862-9 (Version None)
Quarter: 2012Q3

REPORT INFORMATION
  Report Type: 
  Country: None (occurrence: None)
  Receive Date: 20120803
  Receipt Date: 20120507
  Transmission Date: 20120928
  Serious: No
  Sender: FDA-Public Use
  Company Number: US-GLAXOSMITHKLINE-A0976589A

PATIENT
  Age: 56 Year
  Sex: Female

DRUGS (1)
  1. HORIZANT [Suspect]
     Indication: MIGRAINE PROPHYLAXIS
     Dosage: 2TAB PER DAY
     Route: 048
     Dates: start: 20120201

REACTIONS (1)
  - WEIGHT DECREASED [None]
